FAERS Safety Report 18558312 (Version 1)
Quarter: 2020Q4

REPORT INFORMATION
  Report Type: Spontaneous
  Country: RO (occurrence: RO)
  Receive Date: 20201130
  Receipt Date: 20201130
  Transmission Date: 20210114
  Serious: Yes (Hospitalization, Other)
  Sender: FDA-Public Use
  Company Number: RO-BRISTOL-MYERS SQUIBB COMPANY-BMS-2020-100649

PATIENT
  Age: 72 Year
  Sex: Female

DRUGS (1)
  1. HYDROXYUREA. [Suspect]
     Active Substance: HYDROXYUREA
     Indication: THROMBOCYTOSIS
     Dosage: 500 MILLIGRAM, QD
     Route: 065

REACTIONS (6)
  - Pseudomonas infection [Unknown]
  - Pneumonia [Unknown]
  - Enterobacter infection [Unknown]
  - Superinfection [Unknown]
  - Escherichia infection [Unknown]
  - Skin necrosis [Unknown]
